FAERS Safety Report 19922906 (Version 1)
Quarter: 2021Q4

REPORT INFORMATION
  Report Type: Spontaneous
  Country: US (occurrence: US)
  Receive Date: 20211005
  Receipt Date: 20211005
  Transmission Date: 20220303
  Serious: No
  Sender: FDA-Public Use
  Company Number: None

PATIENT
  Age: 58 Year
  Sex: Female
  Weight: 79.38 kg

DRUGS (4)
  1. FORTEO [Suspect]
     Active Substance: TERIPARATIDE
     Indication: Myositis
     Dosage: ?          OTHER STRENGTH:600MCG/2.4ML, 20MC;
     Route: 058
     Dates: start: 202009
  2. FORTEO [Suspect]
     Active Substance: TERIPARATIDE
     Indication: Osteoarthritis
  3. FORTEO [Suspect]
     Active Substance: TERIPARATIDE
     Indication: Soft tissue disorder
  4. FORTEO [Suspect]
     Active Substance: TERIPARATIDE
     Indication: Osteoporosis

REACTIONS (1)
  - Pain in extremity [None]
